FAERS Safety Report 5338686-X (Version None)
Quarter: 2007Q2

REPORT INFORMATION
  Report Type: 
  Country: None (occurrence: None)
  Receive Date: 20070530
  Receipt Date: 20070525
  Transmission Date: 20071010
  Serious: No
  Sender: FDA-Public Use
  Company Number: A0650794A

PATIENT
  Age: 53 Year
  Sex: Female
  Weight: 69.5 kg

DRUGS (10)
  1. TYKERB [Suspect]
     Indication: BREAST CANCER
     Dosage: 5TAB PER DAY
     Route: 048
  2. K-DUR 10 [Concomitant]
  3. ANZEMET [Concomitant]
  4. DECADRON [Concomitant]
  5. FAMOTIDINE [Concomitant]
  6. LASIX [Concomitant]
  7. ATIVAN [Concomitant]
  8. METOCLOPRAMIDE [Concomitant]
  9. MORPHINE [Concomitant]
  10. NEULASTA [Concomitant]

REACTIONS (2)
  - BLOOD CREATININE INCREASED [None]
  - RENAL IMPAIRMENT [None]
